FAERS Safety Report 19630588 (Version 1)
Quarter: 2021Q3

REPORT INFORMATION
  Report Type: Spontaneous
  Country: CN (occurrence: CN)
  Receive Date: 20210729
  Receipt Date: 20210729
  Transmission Date: 20211014
  Serious: Yes (Hospitalization, Other)
  Sender: FDA-Public Use
  Company Number: CN-GLAXOSMITHKLINE-CN2021APC157467

PATIENT
  Age: 26 Year
  Sex: Female
  Weight: 43 kg

DRUGS (2)
  1. LITHIUM CARBONATE. [Suspect]
     Active Substance: LITHIUM CARBONATE
     Indication: AFFECTIVE DISORDER
     Dosage: 0.500 G, BID
     Route: 048
     Dates: start: 20210613, end: 20210627
  2. LAMOTRIGINE. [Suspect]
     Active Substance: LAMOTRIGINE
     Indication: AFFECTIVE DISORDER
     Dosage: 25 MG, BID
     Route: 048
     Dates: start: 20210617, end: 20210627

REACTIONS (13)
  - Flushing [Recovering/Resolving]
  - Drug hypersensitivity [Unknown]
  - Rales [Recovering/Resolving]
  - Pruritus [Recovering/Resolving]
  - Pneumonia [Recovering/Resolving]
  - Dizziness [Recovering/Resolving]
  - Pharyngeal erythema [Recovering/Resolving]
  - Rash macular [Recovering/Resolving]
  - Rash [Recovering/Resolving]
  - Pyrexia [Recovering/Resolving]
  - Drug eruption [Recovering/Resolving]
  - Hyperaemia [Recovering/Resolving]
  - Discomfort [Recovering/Resolving]

NARRATIVE: CASE EVENT DATE: 20210626
